FAERS Safety Report 23179183 (Version 1)
Quarter: 2023Q4

REPORT INFORMATION
  Report Type: Spontaneous
  Country: BR (occurrence: BR)
  Receive Date: 20231113
  Receipt Date: 20231113
  Transmission Date: 20240109
  Serious: Yes (Other)
  Sender: FDA-Public Use
  Company Number: BR-NOVOPROD-1136964

PATIENT
  Age: 9 Year
  Sex: Female

DRUGS (2)
  1. NOVOSEVEN [Suspect]
     Active Substance: COAGULATION FACTOR VIIA RECOMBINANT HUMAN
     Indication: Prophylaxis
     Dosage: (UNK) CONTINUED EVERY OTHER DAY FOR 10 MONTHS
  2. NOVOSEVEN [Suspect]
     Active Substance: COAGULATION FACTOR VIIA RECOMBINANT HUMAN
     Indication: Glanzmann^s disease
     Dosage: 90 ?G/KG (RANGE 80-120 ?G), TIW

REACTIONS (4)
  - Hypovolaemic shock [Unknown]
  - Haemorrhage [Unknown]
  - Drug ineffective [Unknown]
  - Off label use [Unknown]
